FAERS Safety Report 4368957-5 (Version None)
Quarter: 2004Q2

REPORT INFORMATION
  Report Type: 
  Country: None (occurrence: None)
  Receive Date: 20040601
  Receipt Date: 20040601
  Transmission Date: 20050107
  Serious: Yes (Hospitalization)
  Sender: FDA-Public Use
  Company Number: None

PATIENT
  Age: 73 Year
  Sex: Female
  Weight: 71 kg

DRUGS (15)
  1. EXISULIND- NOT RELATED [Suspect]
     Indication: LUNG NEOPLASM MALIGNANT
     Dosage: 125 MG BID
     Dates: start: 20040115, end: 20040505
  2. PRILOSEC [Concomitant]
  3. MORPHINE [Concomitant]
  4. COUMADIN [Concomitant]
  5. COMPAZINE [Concomitant]
  6. AMBIEN [Concomitant]
  7. ANUSOL SUPPOSITORY [Concomitant]
  8. ASPIRIN [Concomitant]
  9. COMPAZINE [Concomitant]
  10. COUMADIN [Concomitant]
  11. MORPHINE [Concomitant]
  12. SUBLINGUAL NITROGLYCERIN [Concomitant]
  13. PRILOSEC [Concomitant]
  14. SENOKOT TABLETS [Concomitant]
  15. DICYCLOMINE [Concomitant]

REACTIONS (1)
  - PLEURODESIS [None]
